FAERS Safety Report 4742139-7 (Version None)
Quarter: 2005Q3

REPORT INFORMATION
  Report Type: 
  Country: None (occurrence: None)
  Receive Date: 20050808
  Receipt Date: 20050803
  Transmission Date: 20060218
  Serious: Yes (Life-Threatening, Hospitalization, Other)
  Sender: FDA-Public Use
  Company Number: 2005-08-0173

PATIENT
  Sex: Female

DRUGS (2)
  1. INTERFERON INJECTABLE [Suspect]
     Indication: HEPATITIS C
     Dates: start: 19980101
  2. RIBAVIRIN [Suspect]
     Indication: HEPATITIS C
     Dosage: ORAL
     Route: 048
     Dates: start: 19980101

REACTIONS (3)
  - COMA [None]
  - DIABETES MELLITUS [None]
  - LOSS OF CONSCIOUSNESS [None]
